FAERS Safety Report 8892068 (Version 1)
Quarter: 2012Q4

REPORT INFORMATION
  Report Type: 
  Country: US (occurrence: US)
  Receive Date: 20121107
  Receipt Date: 20121107
  Transmission Date: 20130627
  Serious: No
  Sender: FDA-Public Use
  Company Number: US-AMGEN-USASP2011055792

PATIENT
  Age: 18 Year
  Sex: Male
  Weight: 57.6 kg

DRUGS (7)
  1. ENBREL [Suspect]
     Indication: RHEUMATOID ARTHRITIS
     Dosage: 50 mg, qwk
     Route: 058
  2. PREDNISONE [Concomitant]
     Dosage: 1 mg, UNK
     Route: 048
  3. CALCIUM [Concomitant]
     Route: 048
  4. MULTIVITAMIN                       /00097801/ [Concomitant]
     Route: 048
  5. FISH OIL [Concomitant]
     Route: 048
  6. VITAMIN D3 [Concomitant]
     Dosage: 1000 IU, UNK
     Route: 048
  7. ASA [Concomitant]
     Dosage: 81 mg, UNK
     Route: 048

REACTIONS (4)
  - Weight decreased [Not Recovered/Not Resolved]
  - Decreased appetite [Unknown]
  - Rheumatoid arthritis [Unknown]
  - Drug ineffective [Unknown]
